FAERS Safety Report 5231984-X (Version None)
Quarter: 2007Q1

REPORT INFORMATION
  Report Type: 
  Country: None (occurrence: None)
  Receive Date: 20070206
  Receipt Date: 20070126
  Transmission Date: 20070707
  Serious: Yes (Hospitalization, Other)
  Sender: FDA-Public Use
  Company Number: US-PFIZER INC-2007007700

PATIENT
  Sex: Female

DRUGS (2)
  1. CELEBREX [Suspect]
     Indication: ARTHRITIS
     Dates: start: 19980101, end: 20041001
  2. CELEBREX [Suspect]
     Indication: BACK DISORDER

REACTIONS (3)
  - CHEST PAIN [None]
  - DEPRESSION [None]
  - THROMBOSIS [None]
